FAERS Safety Report 9066821 (Version 2)
Quarter: 2013Q2

REPORT INFORMATION
  Report Type: Spontaneous
  Country: FR (occurrence: FR)
  Receive Date: 20130214
  Receipt Date: 20130409
  Transmission Date: 20140414
  Serious: Yes (Hospitalization)
  Sender: FDA-Public Use
  Company Number: FR-GLAXOSMITHKLINE-B0866111A

PATIENT
  Age: 33 Year
  Sex: Female

DRUGS (2)
  1. NARAMIG [Suspect]
     Indication: MIGRAINE
     Dosage: 2.5MG AS REQUIRED
     Route: 048
     Dates: start: 2004
  2. DIANE 35 [Suspect]
     Indication: ACNE
     Route: 048
     Dates: start: 201202, end: 20121031

REACTIONS (8)
  - Pulmonary embolism [Recovering/Resolving]
  - Phlebitis [Recovering/Resolving]
  - Gait disturbance [Recovering/Resolving]
  - Pain in extremity [Recovering/Resolving]
  - Chest pain [Recovering/Resolving]
  - Dyspnoea at rest [Recovering/Resolving]
  - Breath sounds abnormal [Recovering/Resolving]
  - Painful respiration [Recovering/Resolving]
